FAERS Safety Report 24607273 (Version 3)
Quarter: 2025Q1

REPORT INFORMATION
  Report Type: Report from Study
  Country: US (occurrence: US)
  Receive Date: 20241112
  Receipt Date: 20250131
  Transmission Date: 20250408
  Serious: No
  Sender: ROCHE
  Company Number: US-ROCHE-2756361

PATIENT
  Age: 26 Year
  Sex: Female
  Weight: 58.97 kg

DRUGS (7)
  1. OCREVUS [Suspect]
     Active Substance: OCRELIZUMAB
     Indication: Multiple sclerosis
     Route: 040
     Dates: start: 20170728
  2. OCREVUS [Suspect]
     Active Substance: OCRELIZUMAB
     Route: 040
     Dates: start: 20170811
  3. OCREVUS [Suspect]
     Active Substance: OCRELIZUMAB
     Route: 040
     Dates: start: 20180126
  4. OCREVUS [Suspect]
     Active Substance: OCRELIZUMAB
     Route: 040
  5. COPAXONE [Suspect]
     Active Substance: GLATIRAMER ACETATE
     Indication: Multiple sclerosis
     Route: 065
  6. FISH OIL [Concomitant]
     Active Substance: FISH OIL
  7. OSELTAMIVIR [Concomitant]
     Active Substance: OSELTAMIVIR
     Route: 048

REACTIONS (2)
  - Maternal exposure before pregnancy [Unknown]
  - Alopecia [Recovered/Resolved]

NARRATIVE: CASE EVENT DATE: 20210101
